FAERS Safety Report 4435562-1 (Version None)
Quarter: 2004Q3

REPORT INFORMATION
  Report Type: 
  Country: None (occurrence: None)
  Receive Date: 20040826
  Receipt Date: 20040806
  Transmission Date: 20050211
  Serious: Yes (Hospitalization)
  Sender: FDA-Public Use
  Company Number: M2002.1885/PHBS2002GB09110

PATIENT
  Age: 31 Year
  Sex: Female

DRUGS (4)
  1. RIMACTANE [Suspect]
     Indication: TUBERCULOID LEPROSY
     Dosage: 600 MG QMO
  2. DAPSONE [Suspect]
     Indication: TUBERCULOID LEPROSY
     Dosage: 100 MG/D
  3. CYCLOSPORINE [Suspect]
     Dosage: 100 MG/D
  4. PREDNISOLONE [Suspect]
     Indication: NEURITIS
     Dosage: 40MG/D

REACTIONS (13)
  - ABSCESS [None]
  - ANAEMIA [None]
  - ANURIA [None]
  - DIARRHOEA [None]
  - DUODENAL ULCER PERFORATION [None]
  - DUODENITIS [None]
  - HAEMOLYSIS [None]
  - HELICOBACTER PYLORI IDENTIFICATION TEST POSITIVE [None]
  - JAUNDICE [None]
  - PYREXIA [None]
  - RENAL FAILURE ACUTE [None]
  - RETICULOCYTE COUNT INCREASED [None]
  - VOMITING [None]
